FAERS Safety Report 8942252 (Version 1)
Quarter: 2012Q4

REPORT INFORMATION
  Report Type: Spontaneous
  Country: US (occurrence: None)
  Receive Date: 20121129
  Receipt Date: 20121129
  Transmission Date: 20130627
  Serious: Yes (Hospitalization)
  Sender: FDA-Public Use
  Company Number: None

PATIENT
  Age: 77 Year
  Sex: Male
  Weight: 75.2 kg

DRUGS (1)
  1. WARFARIN [Suspect]
     Indication: ATRIAL FIBRILLATION
     Dosage: 5 MG  Other  PO
     Route: 048
     Dates: start: 20060214

REACTIONS (4)
  - Diarrhoea haemorrhagic [None]
  - Haemorrhoids [None]
  - Gastric haemorrhage [None]
  - Polyp [None]
